FAERS Safety Report 6295882-5 (Version None)
Quarter: 2009Q3

REPORT INFORMATION
  Report Type: 
  Country: None (occurrence: None)
  Receive Date: 20090804
  Receipt Date: 20090728
  Transmission Date: 20100115
  Serious: Yes (Life-Threatening)
  Sender: FDA-Public Use
  Company Number: JP-ASTRAZENECA-2009SE06456

PATIENT
  Age: 59 Year
  Sex: Female

DRUGS (1)
  1. BLOPRESS [Suspect]
     Indication: HYPERTENSION
     Route: 048
     Dates: start: 20081201, end: 20090724

REACTIONS (2)
  - DECREASED APPETITE [None]
  - WEIGHT DECREASED [None]
